FAERS Safety Report 12476009 (Version 1)
Quarter: 2016Q2

REPORT INFORMATION
  Report Type: Spontaneous
  Country: US (occurrence: US)
  Receive Date: 20160617
  Receipt Date: 20160617
  Transmission Date: 20160815
  Serious: No
  Sender: FDA-Public Use
  Company Number: US-WELLSTAT THERAPEUTICS CORPORATION-1053913

PATIENT
  Sex: Female

DRUGS (6)
  1. VISTOGARD [Suspect]
     Active Substance: URIDINE TRIACETATE
     Indication: ACCIDENTAL OVERDOSE
     Route: 048
     Dates: start: 201605
  2. UNSPECIFIED MEDICATION FOR ANXIETY [Concomitant]
  3. FLUOROURACIL. [Concomitant]
     Active Substance: FLUOROURACIL
     Dates: start: 201605, end: 201605
  4. NEUPOGEN [Concomitant]
     Active Substance: FILGRASTIM
  5. GLUTAMINE [Concomitant]
     Active Substance: GLUTAMINE
  6. ELECTROLYTE PLUS [Concomitant]
     Active Substance: HOMEOPATHICS

REACTIONS (1)
  - Vomiting [None]

NARRATIVE: CASE EVENT DATE: 20160513
